FAERS Safety Report 5836897-8 (Version None)
Quarter: 2008Q3

REPORT INFORMATION
  Report Type: 
  Country: None (occurrence: None)
  Receive Date: 20080805
  Receipt Date: 20080728
  Transmission Date: 20090109
  Serious: Yes (Death)
  Sender: FDA-Public Use
  Company Number: CHPA2008US11261

PATIENT
  Age: 76 Year
  Sex: Female

DRUGS (1)
  1. MAALOX MS TOTAL STOMACH RELIEF (NCH)(BISMUTH SUBSALICYLATE) SUSPENSION [Suspect]
     Indication: NAUSEA
     Dosage: 6 TSP, ONCE/SINGLE, ORAL
     Route: 048
     Dates: start: 20080629

REACTIONS (2)
  - FAECES DISCOLOURED [None]
  - MYOCARDIAL INFARCTION [None]
